FAERS Safety Report 5050760-4 (Version None)
Quarter: 2006Q3

REPORT INFORMATION
  Report Type: 
  Country: None (occurrence: None)
  Receive Date: 20060713
  Receipt Date: 20060626
  Transmission Date: 20061208
  Serious: Yes (Life-Threatening)
  Sender: FDA-Public Use
  Company Number: JP-BOEHRINGER INGELHEIM PHARMACEUTICALS, INC.-2006-BP-07267NB

PATIENT
  Sex: Female
  Weight: 63.6 kg

DRUGS (5)
  1. MICARDIS [Suspect]
     Indication: HYPERTENSION
     Route: 048
     Dates: start: 20031015, end: 20031128
  2. PATYUNA (TICLOPIDINE HYDROCHLORIDE) [Concomitant]
     Route: 048
     Dates: start: 20021022
  3. TANATRIL [Concomitant]
     Route: 048
     Dates: start: 20021022, end: 20031112
  4. FUROSEMIDE [Concomitant]
     Route: 048
     Dates: start: 20021022, end: 20031112
  5. ATELEC [Concomitant]
     Route: 048
     Dates: start: 20030311

REACTIONS (1)
  - RENAL IMPAIRMENT [None]
